FAERS Safety Report 11378828 (Version 1)
Quarter: 2015Q3

REPORT INFORMATION
  Report Type: Spontaneous
  Country: US (occurrence: US)
  Receive Date: 20150811
  Receipt Date: 20150811
  Transmission Date: 20151125
  Serious: No
  Sender: FDA-Public Use
  Company Number: US-ELI_LILLY_AND_COMPANY-US200907006272

PATIENT
  Sex: Female

DRUGS (3)
  1. NOVOLOG [Concomitant]
     Active Substance: INSULIN ASPART
  2. HUMULIN N [Suspect]
     Active Substance: INSULIN HUMAN
  3. LEVEMIR [Concomitant]
     Active Substance: INSULIN DETEMIR

REACTIONS (5)
  - Wrong technique in product usage process [Unknown]
  - Injection site nodule [Unknown]
  - Injection site discomfort [Unknown]
  - Injection site bruising [Unknown]
  - Injection site pain [Unknown]
